FAERS Safety Report 8349683-4 (Version None)
Quarter: 2012Q2

REPORT INFORMATION
  Report Type: 
  Country: None (occurrence: None)
  Receive Date: 20120510
  Receipt Date: 20120503
  Transmission Date: 20120825
  Serious: Yes (Life-Threatening, Hospitalization)
  Sender: FDA-Public Use
  Company Number: US-BAYER-2011-114311

PATIENT
  Age: 45 Year
  Sex: Female
  Weight: 63.492 kg

DRUGS (7)
  1. LEXAPRO [Concomitant]
  2. NEXIUM [Concomitant]
  3. BENICAR [Concomitant]
     Indication: BLOOD PRESSURE MANAGEMENT
     Dosage: UNK
     Dates: start: 20050101, end: 20110101
  4. IBUPROFEN [Concomitant]
     Indication: PAIN
     Dosage: UNK
     Dates: start: 20090620
  5. YASMIN [Suspect]
     Indication: ACNE
     Dosage: UNK
     Dates: start: 20020101, end: 20090101
  6. LIPITOR [Concomitant]
     Indication: BLOOD CHOLESTEROL ABNORMAL
     Dosage: UNK
     Dates: start: 20050101, end: 20110101
  7. VALTREX [Concomitant]
     Indication: HERPES SIMPLEX
     Dosage: UNK
     Dates: start: 20040101, end: 20110101

REACTIONS (4)
  - QUALITY OF LIFE DECREASED [None]
  - INJURY [None]
  - PAIN [None]
  - PULMONARY EMBOLISM [None]
